FAERS Safety Report 5808629-0 (Version None)
Quarter: 2008Q3

REPORT INFORMATION
  Report Type: 
  Country: None (occurrence: None)
  Receive Date: 20080709
  Receipt Date: 20080709
  Transmission Date: 20090109
  Serious: No
  Sender: FDA-Public Use
  Company Number: None

PATIENT
  Age: 59 Year
  Sex: Male

DRUGS (2)
  1. EZETIMIBE [Suspect]
     Indication: HYPERLIPIDAEMIA
     Dosage: 10 MG EVERY DAY PO
     Route: 048
     Dates: start: 20050125, end: 20080225
  2. NIACIN [Suspect]
     Dosage: 750 MG EVERY DAY PO
     Route: 048
     Dates: start: 20040629, end: 20080308

REACTIONS (2)
  - RENAL FAILURE ACUTE [None]
  - RHABDOMYOLYSIS [None]
